FAERS Safety Report 8821833 (Version 1)
Quarter: 2012Q4

REPORT INFORMATION
  Report Type: 
  Country: FR (occurrence: FR)
  Receive Date: 20121002
  Receipt Date: 20121002
  Transmission Date: 20130627
  Serious: Yes (Hospitalization, Other)
  Sender: FDA-Public Use
  Company Number: FR-BRISTOL-MYERS SQUIBB COMPANY-16992927

PATIENT
  Age: 90 Year
  Sex: Female

DRUGS (4)
  1. APROVEL TABS 75 MG [Suspect]
     Route: 048
  2. MEDIATENSYL [Suspect]
     Dosage: caps
     Route: 048
     Dates: end: 20120813
  3. LERCAN [Suspect]
     Dosage: Formulation-Lercan 10 mg scored film-coated tab
     Route: 048
     Dates: end: 20120813
  4. RYTHMOL [Concomitant]
     Dosage: Formulation-Rythmol 300 mg scored film-coated tab
     Route: 048

REACTIONS (7)
  - Orthostatic hypotension [Recovered/Resolved]
  - Fall [Recovered/Resolved]
  - Loss of consciousness [Unknown]
  - Skeletal injury [Unknown]
  - Abdominal pain [Unknown]
  - Constipation [Unknown]
  - Hypertension [Unknown]
